FAERS Safety Report 11844786 (Version 2)
Quarter: 2015Q4

REPORT INFORMATION
  Report Type: Spontaneous
  Country: ES (occurrence: ES)
  Receive Date: 20151217
  Receipt Date: 20151221
  Transmission Date: 20160305
  Serious: Yes (Other)
  Sender: FDA-Public Use
  Company Number: ES-TEVA-619586ISR

PATIENT
  Age: 74 Year
  Sex: Female

DRUGS (18)
  1. OMEPRAZOLE. [Interacting]
     Active Substance: OMEPRAZOLE
  2. CLORAZEPATE [Interacting]
     Active Substance: CLORAZEPATE DIPOTASSIUM
  3. DIGOXIN. [Interacting]
     Active Substance: DIGOXIN
  4. METHYLPREDNISOLONE ACEPONATE [Interacting]
     Active Substance: METHYLPREDNISOLONE ACEPONATE
     Route: 061
  5. FOLIC ACID. [Concomitant]
     Active Substance: FOLIC ACID
  6. INSULIN [Concomitant]
     Active Substance: INSULIN NOS
  7. ALPRAZOLAM. [Interacting]
     Active Substance: ALPRAZOLAM
  8. DILTIAZEM [Interacting]
     Active Substance: DILTIAZEM
  9. PREDNISONE. [Interacting]
     Active Substance: PREDNISONE
     Route: 048
  10. HYDROCHLOROTHIAZIDE. [Interacting]
     Active Substance: HYDROCHLOROTHIAZIDE
  11. CLOBETASOL [Interacting]
     Active Substance: CLOBETASOL
     Route: 061
  12. ENOXAPARIN [Interacting]
     Active Substance: ENOXAPARIN
  13. BISOPROLOL [Interacting]
     Active Substance: BISOPROLOL
  14. METHOTREXATE [Interacting]
     Active Substance: METHOTREXATE
  15. FUROSEMIDE. [Interacting]
     Active Substance: FUROSEMIDE
  16. RAMIPRIL. [Suspect]
     Active Substance: RAMIPRIL
  17. ACENOCOUMAROL [Interacting]
     Active Substance: ACENOCOUMAROL
  18. HYDROCORTISONE. [Interacting]
     Active Substance: HYDROCORTISONE
     Route: 061

REACTIONS (10)
  - Drug interaction [Unknown]
  - Erythrodermic psoriasis [Recovering/Resolving]
  - Disorientation [Unknown]
  - Euphoric mood [Unknown]
  - Erythema [Recovering/Resolving]
  - Toxicity to various agents [Recovering/Resolving]
  - Transaminases increased [Recovering/Resolving]
  - Condition aggravated [Recovering/Resolving]
  - Stupor [Unknown]
  - Somnolence [Unknown]
